FAERS Safety Report 16063242 (Version 1)
Quarter: 2019Q1

REPORT INFORMATION
  Report Type: Spontaneous
  Country: NO (occurrence: NO)
  Receive Date: 20190312
  Receipt Date: 20190312
  Transmission Date: 20190418
  Serious: Yes (Other)
  Sender: FDA-Public Use
  Company Number: NO-MYLANLABS-2019M1021965

PATIENT
  Age: 39 Year
  Sex: Male

DRUGS (1)
  1. NAPROXEN-E MYLAN [Suspect]
     Active Substance: NAPROXEN
     Indication: AXIAL SPONDYLOARTHRITIS
     Dosage: UNK
     Route: 048

REACTIONS (2)
  - Dyspnoea [Recovered/Resolved]
  - Mouth swelling [Recovered/Resolved]
